FAERS Safety Report 20823726 (Version 1)
Quarter: 2022Q2

REPORT INFORMATION
  Report Type: Report from Study
  Country: US (occurrence: US)
  Receive Date: 20220513
  Receipt Date: 20220513
  Transmission Date: 20220720
  Serious: Yes (Other)
  Sender: FDA-Public Use
  Company Number: US-CIPLA LTD.-2022US03002

PATIENT

DRUGS (1)
  1. CARBOPLATIN [Suspect]
     Active Substance: CARBOPLATIN
     Indication: Oropharyngeal squamous cell carcinoma
     Dosage: UNK, AUC 1.5 WEEKLY
     Route: 065

REACTIONS (2)
  - Oropharyngeal scar [Unknown]
  - Fibrosis [Unknown]
